FAERS Safety Report 6971441-3 (Version None)
Quarter: 2010Q3

REPORT INFORMATION
  Report Type: 
  Country: None (occurrence: None)
  Receive Date: 20100903
  Receipt Date: 20100825
  Transmission Date: 20110219
  Serious: Yes (Hospitalization)
  Sender: FDA-Public Use
  Company Number: 2010US003112

PATIENT
  Age: 59 Year
  Sex: Female
  Weight: 50 kg

DRUGS (5)
  1. AMEVIVE [Suspect]
     Indication: PSORIASIS
     Dosage: 15 MG/10ML, WEEKLY, INTRAMUSCULAR
     Route: 030
     Dates: start: 20100614, end: 20100628
  2. CALCIUM (CALCIUM) [Concomitant]
  3. VITAMIN D [Concomitant]
  4. BENADRYL [Concomitant]
  5. ACETAMINOPHEN [Concomitant]

REACTIONS (4)
  - DERMATITIS EXFOLIATIVE [None]
  - NAUSEA [None]
  - PYREXIA [None]
  - SUNBURN [None]
